FAERS Safety Report 19451217 (Version 1)
Quarter: 2021Q2

REPORT INFORMATION
  Report Type: Spontaneous
  Country: US (occurrence: US)
  Receive Date: 20210622
  Receipt Date: 20210622
  Transmission Date: 20210717
  Serious: Yes (Death)
  Sender: FDA-Public Use
  Company Number: None

PATIENT
  Age: 75 Year
  Sex: Female

DRUGS (12)
  1. POTASSIUM CHLORIDE. [Concomitant]
     Active Substance: POTASSIUM CHLORIDE
  2. SPIRIVA RESPIMAT [Concomitant]
     Active Substance: TIOTROPIUM BROMIDE
  3. AMBRISENTAN 10MG TABLETS 30/BO: 10MG [Suspect]
     Active Substance: AMBRISENTAN
     Indication: PULMONARY ARTERIAL HYPERTENSION
     Route: 048
     Dates: start: 20190320, end: 20210117
  4. FUROSEMIDE. [Concomitant]
     Active Substance: FUROSEMIDE
  5. BISOPROLOL [Concomitant]
     Active Substance: BISOPROLOL
  6. METOLAZONE. [Concomitant]
     Active Substance: METOLAZONE
  7. OXYGEN INTRANASAL [Concomitant]
  8. AMBRISENTAN 10MG TABLETS 30/BO: 10MG [Suspect]
     Active Substance: AMBRISENTAN
     Indication: HERITABLE PULMONARY ARTERIAL HYPERTENSION
     Route: 048
     Dates: start: 20190320, end: 20210117
  9. NO DRUG NAME [Concomitant]
  10. ALBUTEROL INHL NEB SOLON [Concomitant]
  11. TYVASO [Concomitant]
     Active Substance: TREPROSTINIL
  12. SILDENAFIL. [Concomitant]
     Active Substance: SILDENAFIL

REACTIONS (10)
  - Hypoxia [None]
  - Chest pain [None]
  - Respiratory failure [None]
  - Hypotension [None]
  - Pulmonary hypertension [None]
  - Myocardial ischaemia [None]
  - Cough [None]
  - Pulseless electrical activity [None]
  - Unresponsive to stimuli [None]
  - Ventricular fibrillation [None]

NARRATIVE: CASE EVENT DATE: 20210617
